FAERS Safety Report 9559501 (Version 1)
Quarter: 2013Q3

REPORT INFORMATION
  Report Type: Spontaneous
  Country: BR (occurrence: BR)
  Receive Date: 20130927
  Receipt Date: 20130927
  Transmission Date: 20140515
  Serious: Yes (Other)
  Sender: FDA-Public Use
  Company Number: BR-JNJFOC-20130912365

PATIENT
  Age: 75 Year
  Sex: Male
  Weight: 73 kg

DRUGS (3)
  1. REMICADE [Suspect]
     Indication: COLITIS
     Route: 042
     Dates: start: 20130916
  2. REMICADE [Suspect]
     Indication: COLITIS
     Route: 042
     Dates: start: 201308
  3. MESALAZINE [Concomitant]
     Indication: PROSTATE CANCER
     Route: 065

REACTIONS (1)
  - Prostatic specific antigen increased [Not Recovered/Not Resolved]
